FAERS Safety Report 4324941-9 (Version None)
Quarter: 2004Q1

REPORT INFORMATION
  Report Type: 
  Country: None (occurrence: None)
  Receive Date: 20040323
  Receipt Date: 20040309
  Transmission Date: 20041129
  Serious: Yes (Death, Other)
  Sender: FDA-Public Use
  Company Number: 2004016688

PATIENT
  Age: 55 Year
  Sex: Female
  Weight: 56 kg

DRUGS (2)
  1. CHLORPROPAMIDE [Suspect]
     Indication: DIABETES MELLITUS
     Dosage: 500 MG (DAILY), ORAL
     Route: 048
  2. METFORMIN HCL [Suspect]
     Indication: DIABETES MELLITUS
     Dosage: 2.25 GRAM (TID), ORAL
     Route: 048

REACTIONS (6)
  - HYPOGLYCAEMIA [None]
  - LACTIC ACIDOSIS [None]
  - MICROCYTIC ANAEMIA [None]
  - RENAL FAILURE ACUTE [None]
  - RENAL TUBULAR DISORDER [None]
  - VITAMIN B12 DEFICIENCY [None]
